FAERS Safety Report 5744372-4 (Version None)
Quarter: 2008Q2

REPORT INFORMATION
  Report Type: 
  Country: None (occurrence: None)
  Receive Date: 20080520
  Receipt Date: 20080508
  Transmission Date: 20081010
  Serious: Yes (Other)
  Sender: FDA-Public Use
  Company Number: JP-ELI_LILLY_AND_COMPANY-JP200804005610

PATIENT
  Age: 74 Year
  Sex: Male
  Weight: 49 kg

DRUGS (10)
  1. HUMULIN R [Suspect]
     Indication: DIABETES MELLITUS
     Dosage: 9 U, DAILY (1/D)
     Route: 042
     Dates: start: 20080408, end: 20080416
  2. HUMULIN R [Suspect]
     Dosage: 9 U, DAILY (1/D)
     Route: 058
     Dates: start: 20080417, end: 20080424
  3. VITAMEDIN [Concomitant]
     Dosage: UNK, UNK
     Route: 042
     Dates: start: 20080407
  4. ASCORBIC ACID [Concomitant]
     Dosage: UNK, UNK
     Route: 042
     Dates: start: 20080407
  5. FAMOTIDINE [Concomitant]
     Dosage: UNK, UNK
     Route: 042
     Dates: start: 20080407, end: 20080416
  6. WYSTAL [Concomitant]
     Dosage: UNK, UNK
     Route: 042
     Dates: start: 20080407, end: 20080415
  7. HIRUDOID [Concomitant]
  8. ALESION [Concomitant]
     Route: 048
  9. ALLOID G [Concomitant]
     Route: 048
     Dates: start: 20080415
  10. EXCELASE [Concomitant]
     Route: 048
     Dates: start: 20080415

REACTIONS (2)
  - ALANINE AMINOTRANSFERASE INCREASED [None]
  - ASPARTATE AMINOTRANSFERASE INCREASED [None]
